FAERS Safety Report 8326365-6 (Version None)
Quarter: 2012Q2

REPORT INFORMATION
  Report Type: 
  Country: None (occurrence: None)
  Receive Date: 20120501
  Receipt Date: 20120420
  Transmission Date: 20120825
  Serious: Yes (Hospitalization)
  Sender: FDA-Public Use
  Company Number: US-ACTELION-A-US2012-64655

PATIENT

DRUGS (3)
  1. COUMADIN [Concomitant]
  2. TRACLEER [Suspect]
     Indication: PULMONARY ARTERIAL HYPERTENSION
     Dosage: UNK
     Route: 048
     Dates: start: 20111013
  3. ADCIRCA [Concomitant]

REACTIONS (6)
  - HEART RATE INCREASED [None]
  - GASTROENTERITIS VIRAL [None]
  - HYPERTENSION [None]
  - LUNG DISORDER [None]
  - PYREXIA [None]
  - DRUG DOSE OMISSION [None]
